FAERS Safety Report 9052773 (Version 1)
Quarter: 2013Q1

REPORT INFORMATION
  Report Type: Spontaneous
  Country: ES (occurrence: ES)
  Receive Date: 20130207
  Receipt Date: 20130207
  Transmission Date: 20140127
  Serious: Yes (Hospitalization, Other)
  Sender: FDA-Public Use
  Company Number: ES-CUBIST PHARMACEUTICAL, INC.-2013CBST000077

PATIENT
  Age: 73 Year
  Sex: Male

DRUGS (5)
  1. CUBICIN [Suspect]
     Indication: PRODUCT USED FOR UNKNOWN INDICATION
     Dosage: 350 MG, QD
     Route: 042
     Dates: start: 20120910
  2. MEROPENEM [Suspect]
     Indication: PNEUMONIA
     Dosage: 1 G, BID
     Route: 042
     Dates: start: 20120907
  3. METRONIDAZOL [Suspect]
     Indication: DIARRHOEA
     Dosage: 250 MG, TID
     Route: 048
     Dates: start: 20120907, end: 20120914
  4. RIFALDIN [Suspect]
     Indication: PRODUCT USED FOR UNKNOWN INDICATION
     Dosage: 600 MG, QD
     Route: 042
     Dates: start: 20120903, end: 20120914
  5. CLEXANE [Suspect]
     Indication: THROMBOSIS PROPHYLAXIS
     Dosage: UNK INJECTION NOS
     Dates: start: 20120811

REACTIONS (1)
  - Pancytopenia [Recovered/Resolved]
